FAERS Safety Report 21974228 (Version 1)
Quarter: 2023Q1

REPORT INFORMATION
  Report Type: Spontaneous
  Country: US (occurrence: None)
  Receive Date: 20230208
  Receipt Date: 20230208
  Transmission Date: 20230418
  Serious: Yes (Other)
  Sender: FDA-Public Use
  Company Number: None

PATIENT
  Age: 80 Year
  Sex: Female
  Weight: 76.5 kg

DRUGS (1)
  1. ARTIFICIAL TEARS LUBRICANT EYE DROPS (CARBOXYMETHYLCELLULOSE SODIUM) [Suspect]
     Active Substance: CARBOXYMETHYLCELLULOSE SODIUM
     Indication: Dry eye
     Dosage: FREQUENCY : AS NEEDED;?
     Route: 047
     Dates: start: 20221229, end: 20230129

REACTIONS (7)
  - Ocular hyperaemia [None]
  - Lacrimation increased [None]
  - Eye pruritus [None]
  - Erythema of eyelid [None]
  - Central vision loss [None]
  - Vision blurred [None]
  - Therapy cessation [None]

NARRATIVE: CASE EVENT DATE: 20230101
